FAERS Safety Report 8914093 (Version 1)
Quarter: 2012Q4

REPORT INFORMATION
  Report Type: Spontaneous
  Country: US (occurrence: None)
  Receive Date: 20121115
  Receipt Date: 20121115
  Transmission Date: 20130627
  Serious: Yes (Death)
  Sender: FDA-Public Use
  Company Number: None

PATIENT
  Age: 78 Year
  Sex: Female
  Weight: 82.5 kg

DRUGS (2)
  1. TRAMADOL [Suspect]
     Route: 048
  2. XARELTO [Suspect]

REACTIONS (7)
  - Mental status changes [None]
  - Lethargy [None]
  - Disseminated intravascular coagulation [None]
  - Sepsis [None]
  - Drug-induced liver injury [None]
  - Hepatic failure [None]
  - Hepatocellular injury [None]
